FAERS Safety Report 8987888 (Version 1)
Quarter: 2012Q4

REPORT INFORMATION
  Report Type: 
  Country: GB (occurrence: US)
  Receive Date: 20121227
  Receipt Date: 20121227
  Transmission Date: 20130627
  Serious: Yes (Hospitalization)
  Sender: FDA-Public Use
  Company Number: GB-PFIZER INC-2012325989

PATIENT
  Age: 71 Year
  Sex: Male
  Weight: 110.7 kg

DRUGS (7)
  1. IBUPROFEN [Suspect]
     Dosage: 400mg as needed
     Route: 065
     Dates: start: 20100114, end: 20100703
  2. PLAVIX [Suspect]
     Dosage: 75 mg, 1x/day
     Route: 065
     Dates: start: 200910, end: 20100703
  3. ACETYLSALICYLIC ACID [Suspect]
     Dosage: UNK
     Route: 065
     Dates: start: 1997, end: 20100703
  4. ALLOPURINOL [Concomitant]
     Dosage: 300 mg, UNK
     Dates: start: 20091130
  5. ATORVASTATIN [Concomitant]
     Dosage: 40 mg, UNK
  6. LOPRESSOR [Concomitant]
     Dates: start: 20091030
  7. AMLODIPINE [Concomitant]
     Dosage: 10 mg, UNK
     Dates: start: 20091031

REACTIONS (1)
  - Gastrointestinal haemorrhage [Recovered/Resolved]
